FAERS Safety Report 18773967 (Version 1)
Quarter: 2021Q1

REPORT INFORMATION
  Report Type: Spontaneous
  Country: US (occurrence: US)
  Receive Date: 20210122
  Receipt Date: 20210122
  Transmission Date: 20210419
  Serious: Yes (Death)
  Sender: FDA-Public Use
  Company Number: None

PATIENT
  Age: 44 Year
  Sex: Male

DRUGS (47)
  1. LACTULOSE. [Concomitant]
     Active Substance: LACTULOSE
  2. LEVOFLOXACIN. [Concomitant]
     Active Substance: LEVOFLOXACIN
  3. OLAZAPINE [Concomitant]
     Active Substance: OLANZAPINE
  4. ART TEARS [Concomitant]
  5. PROPOFOL INF [Concomitant]
  6. THIAMINE. [Concomitant]
     Active Substance: THIAMINE
  7. CHLORHEXIDINE GLUCONATE ORAL RINSE, 0.12% [Suspect]
     Active Substance: CHLORHEXIDINE GLUCONATE
     Indication: PNEUMONIA
     Route: 048
     Dates: start: 20200806, end: 20200817
  8. ANIDULAFUNGIN [Concomitant]
     Active Substance: ANIDULAFUNGIN
  9. BISACODYL SUPPX [Concomitant]
  10. DEXTROSE. [Concomitant]
     Active Substance: DEXTROSE
  11. HEPARIN [Concomitant]
     Active Substance: HEPARIN SODIUM
  12. HYDROMORPHONE [Concomitant]
     Active Substance: HYDROMORPHONE
  13. LORAZEPAM. [Concomitant]
     Active Substance: LORAZEPAM
  14. MERREM [Concomitant]
     Active Substance: MEROPENEM
  15. CALCIUM CHLORIDE. [Concomitant]
     Active Substance: CALCIUM CHLORIDE
  16. CEFTRIAXONE. [Concomitant]
     Active Substance: CEFTRIAXONE
  17. IOHEXOL [Concomitant]
     Active Substance: IOHEXOL
  18. MAG CITRATE [Concomitant]
  19. DEXEMEDETOMIDINE [Concomitant]
     Active Substance: DEXMEDETOMIDINE
  20. ENOXAPARIN [Concomitant]
     Active Substance: ENOXAPARIN
  21. ZOSYN [Concomitant]
     Active Substance: PIPERACILLIN SODIUM\TAZOBACTAM SODIUM
  22. VASOPRESSIN. [Concomitant]
     Active Substance: VASOPRESSIN
  23. ACETAMINOPHEN. [Concomitant]
     Active Substance: ACETAMINOPHEN
  24. ALBUMIN [Concomitant]
     Active Substance: ALBUMIN HUMAN
  25. FENTANYL. [Concomitant]
     Active Substance: FENTANYL
  26. MAG SULFATE [Concomitant]
  27. NACITRATE [Concomitant]
  28. DOCUSATE [Concomitant]
     Active Substance: DOCUSATE
  29. LIDOCAINE. [Concomitant]
     Active Substance: LIDOCAINE
  30. MIDAZOLAM. [Concomitant]
     Active Substance: MIDAZOLAM
  31. MIDODRINE [Concomitant]
     Active Substance: MIDODRINE
  32. SENOKOT [Concomitant]
     Active Substance: SENNOSIDES
  33. CALCIUM GLUCONATE. [Concomitant]
     Active Substance: CALCIUM GLUCONATE
  34. GADOBUTROL. [Concomitant]
     Active Substance: GADOBUTROL
  35. NOREPINEPHRINE. [Concomitant]
     Active Substance: NOREPINEPHRINE
  36. OCTREOTIDE. [Concomitant]
     Active Substance: OCTREOTIDE
  37. PANTOPRAZOLE [Concomitant]
     Active Substance: PANTOPRAZOLE
  38. KCI [Concomitant]
  39. PRISMASATE SOLN [Concomitant]
  40. QUETIAPINE. [Concomitant]
     Active Substance: QUETIAPINE
  41. RIFAMIXIN [Concomitant]
     Active Substance: RIFAXIMIN
  42. VANCOMYCIN [Concomitant]
     Active Substance: VANCOMYCIN
  43. MELATONIN [Concomitant]
     Active Substance: MELATONIN
  44. PHENYLEPRINE [Concomitant]
     Active Substance: PHENYLEPHRINE HYDROCHLORIDE
  45. NAHCO3 [Concomitant]
     Active Substance: SODIUM BICARBONATE
  46. SODIUM PHOSPHATE [Concomitant]
     Active Substance: SODIUM PHOSPHATE
  47. PHOSPHATE ENEMA [Concomitant]
     Active Substance: SODIUM PHOSPHATE, DIBASIC\SODIUM PHOSPHATE, MONOBASIC

REACTIONS (11)
  - Shock [None]
  - Sepsis [None]
  - Recalled product [None]
  - Shock haemorrhagic [None]
  - Hepatic cirrhosis [None]
  - Suspected product contamination [None]
  - Increased viscosity of upper respiratory secretion [None]
  - Burkholderia test positive [None]
  - Jaundice [None]
  - Leukocytosis [None]
  - Septic shock [None]

NARRATIVE: CASE EVENT DATE: 20200810
